FAERS Safety Report 6869234-0 (Version None)
Quarter: 2010Q3

REPORT INFORMATION
  Report Type: 
  Country: None (occurrence: None)
  Receive Date: 20100722
  Receipt Date: 20100722
  Transmission Date: 20110219
  Serious: Yes (Life-Threatening, Hospitalization, Disabling)
  Sender: FDA-Public Use
  Company Number: None

PATIENT
  Age: 29 Year
  Sex: Female
  Weight: 82.5547 kg

DRUGS (2)
  1. TEGRETOL [Suspect]
     Indication: BIPOLAR DISORDER
     Dosage: 200 BID X30 ORAL
     Route: 048
     Dates: start: 20090818, end: 20090824
  2. TEGRETOL [Suspect]
     Indication: CONVULSION
     Dosage: 200 BID X30 ORAL
     Route: 048
     Dates: start: 20090818, end: 20090824

REACTIONS (4)
  - BLISTER [None]
  - HEADACHE [None]
  - RASH MACULO-PAPULAR [None]
  - URTICARIA [None]
